FAERS Safety Report 6168659-9 (Version None)
Quarter: 2009Q2

REPORT INFORMATION
  Report Type: 
  Country: None (occurrence: None)
  Receive Date: 20090424
  Receipt Date: 20090424
  Transmission Date: 20091009
  Serious: No
  Sender: FDA-Public Use
  Company Number: None

PATIENT
  Age: 14 Year
  Sex: Male
  Weight: 45.3597 kg

DRUGS (1)
  1. VYVANSE [Suspect]
     Indication: ATTENTION DEFICIT/HYPERACTIVITY DISORDER
     Dosage: 30 MG QDAY PO APROX 1 MO AGO (SINCE MID MARCH)
     Route: 048

REACTIONS (3)
  - CHEST PAIN [None]
  - MENTAL STATUS CHANGES [None]
  - VOMITING [None]
